FAERS Safety Report 21006164 (Version 3)
Quarter: 2022Q3

REPORT INFORMATION
  Report Type: Report from Study
  Country: US (occurrence: US)
  Receive Date: 20220624
  Receipt Date: 20220906
  Transmission Date: 20221027
  Serious: Yes (Hospitalization, Other)
  Sender: FDA-Public Use
  Company Number: US-TAKEDA-2022TUS041249

PATIENT
  Age: 30 Year
  Sex: Male

DRUGS (50)
  1. TEDUGLUTIDE [Suspect]
     Active Substance: TEDUGLUTIDE
     Indication: Short-bowel syndrome
     Dosage: 3.7 MILLIGRAM, QD
     Route: 042
     Dates: start: 20191210, end: 20210503
  2. TEDUGLUTIDE [Suspect]
     Active Substance: TEDUGLUTIDE
     Indication: Short-bowel syndrome
     Dosage: 3.7 MILLIGRAM, QD
     Route: 042
     Dates: start: 20191210, end: 20210503
  3. TEDUGLUTIDE [Suspect]
     Active Substance: TEDUGLUTIDE
     Indication: Short-bowel syndrome
     Dosage: 3.7 MILLIGRAM, QD
     Route: 042
     Dates: start: 20191210, end: 20210503
  4. TEDUGLUTIDE [Suspect]
     Active Substance: TEDUGLUTIDE
     Indication: Short-bowel syndrome
     Dosage: 3.7 MILLIGRAM, QD
     Route: 042
     Dates: start: 20191210, end: 20210503
  5. Ceftriazona [Concomitant]
     Indication: Endocarditis
     Dosage: 2 GRAM, BID
     Route: 042
     Dates: start: 20210312, end: 20210421
  6. Ceftriazona [Concomitant]
     Indication: Vascular device infection
     Dosage: 2 GRAM, QD
     Route: 042
     Dates: start: 20190117, end: 20190130
  7. Ceftriazona [Concomitant]
     Indication: Wound infection
     Dosage: 2 GRAM, QD
     Route: 042
     Dates: start: 20201212, end: 20201222
  8. Ceftriazona [Concomitant]
     Dosage: 2 GRAM, QD
     Route: 042
     Dates: start: 20210205, end: 20210219
  9. Ceftriazona [Concomitant]
     Dosage: 2 GRAM, BID
     Route: 042
     Dates: start: 20210312, end: 20210421
  10. UNASYN [Concomitant]
     Active Substance: AMPICILLIN SODIUM\SULBACTAM SODIUM
     Indication: Endocarditis
     Dosage: 3 GRAM, QID
     Route: 042
     Dates: start: 20210318, end: 20210421
  11. AMPICILLIN [Concomitant]
     Active Substance: AMPICILLIN
     Indication: Endocarditis
     Dosage: 4 GRAM, TID
     Route: 042
     Dates: start: 20210312, end: 20210318
  12. MICAFUNGIN [Concomitant]
     Active Substance: MICAFUNGIN
     Indication: Vascular device infection
     Dosage: 100 MILLIGRAM, QD
     Route: 042
     Dates: start: 20210312, end: 20210421
  13. MICAFUNGIN [Concomitant]
     Active Substance: MICAFUNGIN
     Dosage: 100 MILLIGRAM, QD
     Route: 042
     Dates: start: 20190116, end: 20190117
  14. MICAFUNGIN [Concomitant]
     Active Substance: MICAFUNGIN
     Dosage: 100 MILLIGRAM, QD
     Route: 042
     Dates: start: 20201231, end: 20210105
  15. MICAFUNGIN [Concomitant]
     Active Substance: MICAFUNGIN
     Dosage: 100 MILLIGRAM, QD
     Route: 042
     Dates: start: 20210203, end: 20210204
  16. MICAFUNGIN [Concomitant]
     Active Substance: MICAFUNGIN
     Dosage: 100 MILLIGRAM, QD
     Route: 042
     Dates: start: 20210312, end: 20210421
  17. ZOSYN [Concomitant]
     Active Substance: PIPERACILLIN SODIUM\TAZOBACTAM SODIUM
     Indication: Vascular device infection
     Dosage: 4.5 GRAM, TID
     Route: 042
     Dates: start: 20190115, end: 20190118
  18. ZOSYN [Concomitant]
     Active Substance: PIPERACILLIN SODIUM\TAZOBACTAM SODIUM
     Dosage: 4.5 GRAM, TID
     Route: 042
     Dates: start: 20190302, end: 20190302
  19. ZOSYN [Concomitant]
     Active Substance: PIPERACILLIN SODIUM\TAZOBACTAM SODIUM
     Dosage: 4.5 GRAM, TID
     Route: 042
     Dates: start: 20201211, end: 20201212
  20. ZOSYN [Concomitant]
     Active Substance: PIPERACILLIN SODIUM\TAZOBACTAM SODIUM
     Dosage: 4.5 GRAM, TID
     Route: 042
     Dates: start: 20201230, end: 20210101
  21. PLASMA-LYTE 148 [Concomitant]
     Active Substance: MAGNESIUM CHLORIDE\POTASSIUM CHLORIDE\SODIUM ACETATE\SODIUM CHLORIDE\SODIUM GLUCONATE
     Indication: Small intestinal obstruction
     Dosage: 2 LITER
     Route: 042
     Dates: start: 20190115, end: 20190115
  22. PLASMA-LYTE 148 [Concomitant]
     Active Substance: MAGNESIUM CHLORIDE\POTASSIUM CHLORIDE\SODIUM ACETATE\SODIUM CHLORIDE\SODIUM GLUCONATE
     Indication: Kidney infection
     Dosage: 1 UNK
     Route: 042
     Dates: start: 20190302, end: 20190302
  23. LACTATED RINGERS SOLUTION [Concomitant]
     Active Substance: CALCIUM CHLORIDE\POTASSIUM CHLORIDE\SODIUM CHLORIDE\SODIUM LACTATE
     Indication: Small intestinal obstruction
     Dosage: 1 LITER
     Route: 042
     Dates: start: 20190115, end: 20190115
  24. LACTATED RINGERS SOLUTION [Concomitant]
     Active Substance: CALCIUM CHLORIDE\POTASSIUM CHLORIDE\SODIUM CHLORIDE\SODIUM LACTATE
     Dosage: 2 LITER
     Route: 042
     Dates: start: 20200921, end: 20200921
  25. LACTATED RINGERS SOLUTION [Concomitant]
     Active Substance: CALCIUM CHLORIDE\POTASSIUM CHLORIDE\SODIUM CHLORIDE\SODIUM LACTATE
     Dosage: 1 LITER
     Route: 042
     Dates: start: 20201213, end: 20201213
  26. CEFTAZIDIME [Concomitant]
     Active Substance: CEFTAZIDIME
     Indication: Vascular device infection
     Dosage: 2 GRAM, TID
     Route: 042
     Dates: start: 20190228, end: 20190228
  27. CEFTAZIDIME [Concomitant]
     Active Substance: CEFTAZIDIME
     Dosage: 2 GRAM
     Route: 042
     Dates: start: 20210203, end: 20210203
  28. VANCOMYCIN [Concomitant]
     Active Substance: VANCOMYCIN
     Indication: Vascular device infection
     Dosage: 1.5 GRAM, BID
     Route: 042
     Dates: start: 20190115, end: 20190117
  29. VANCOMYCIN [Concomitant]
     Active Substance: VANCOMYCIN
     Dosage: 1.75 GRAM
     Route: 042
     Dates: start: 20190228, end: 20190228
  30. VANCOMYCIN [Concomitant]
     Active Substance: VANCOMYCIN
     Dosage: 1 GRAM, BID
     Route: 042
     Dates: start: 20190301, end: 20190301
  31. VANCOMYCIN [Concomitant]
     Active Substance: VANCOMYCIN
     Dosage: 1.2 GRAM, QD
     Route: 042
     Dates: start: 20190301, end: 20190302
  32. VANCOMYCIN [Concomitant]
     Active Substance: VANCOMYCIN
     Dosage: 500 MILLIGRAM
     Route: 042
     Dates: start: 20190304, end: 20190304
  33. VANCOMYCIN [Concomitant]
     Active Substance: VANCOMYCIN
     Dosage: 1 GRAM, QD
     Route: 042
     Dates: start: 20190306, end: 20190313
  34. VANCOMYCIN [Concomitant]
     Active Substance: VANCOMYCIN
     Dosage: 1.25 GRAM, QD
     Route: 042
     Dates: start: 20190314, end: 20190413
  35. VANCOMYCIN [Concomitant]
     Active Substance: VANCOMYCIN
     Dosage: 1.75 GRAM
     Route: 042
     Dates: start: 20200919, end: 20200919
  36. VANCOMYCIN [Concomitant]
     Active Substance: VANCOMYCIN
     Dosage: 1 GRAM, TID
     Route: 042
     Dates: start: 20200919, end: 20210921
  37. VANCOMYCIN [Concomitant]
     Active Substance: VANCOMYCIN
     Dosage: 1.75 GRAM
     Route: 042
     Dates: start: 20201230, end: 20201230
  38. VANCOMYCIN [Concomitant]
     Active Substance: VANCOMYCIN
     Dosage: 1 GRAM, BID
     Route: 042
     Dates: start: 20201230, end: 20210101
  39. VANCOMYCIN [Concomitant]
     Active Substance: VANCOMYCIN
     Dosage: 1.75 GRAM
     Route: 042
     Dates: start: 20210203, end: 20210203
  40. VANCOMYCIN [Concomitant]
     Active Substance: VANCOMYCIN
     Dosage: 1 GRAM, QD
     Route: 042
     Dates: start: 20210204, end: 20210204
  41. VANCOMYCIN [Concomitant]
     Active Substance: VANCOMYCIN
     Dosage: 1.75 GRAM
     Route: 042
     Dates: start: 20210306, end: 20210306
  42. VANCOMYCIN [Concomitant]
     Active Substance: VANCOMYCIN
     Dosage: 1 GRAM, BID
     Route: 042
     Dates: start: 20210307, end: 20210310
  43. VANCOMYCIN [Concomitant]
     Active Substance: VANCOMYCIN
     Dosage: 1.5 GRAM, BID
     Route: 042
     Dates: start: 20210310, end: 20210312
  44. FLUCONAZOLE [Concomitant]
     Active Substance: FLUCONAZOLE
     Indication: Urinary tract infection
     Dosage: 800 MILLIGRAM
     Route: 042
     Dates: start: 20200923, end: 20200923
  45. FLUCONAZOLE [Concomitant]
     Active Substance: FLUCONAZOLE
     Indication: Vascular device infection
     Dosage: 400 MILLIGRAM, QD
     Route: 042
     Dates: start: 20200923, end: 20201005
  46. FLUCONAZOLE [Concomitant]
     Active Substance: FLUCONAZOLE
     Dosage: 800 MILLIGRAM
     Route: 048
     Dates: start: 20210106, end: 20210106
  47. FLUCONAZOLE [Concomitant]
     Active Substance: FLUCONAZOLE
     Dosage: 400 MILLIGRAM, QD
     Route: 048
     Dates: start: 20210106, end: 20210114
  48. GENTAMICIN [Concomitant]
     Active Substance: GENTAMICIN
     Indication: Vascular device infection
     Dosage: 5
     Route: 042
     Dates: start: 20210205, end: 20210219
  49. CEFEPIME [Concomitant]
     Active Substance: CEFEPIME HYDROCHLORIDE
     Indication: Vascular device infection
     Dosage: 2 GRAM, TID
     Route: 042
     Dates: start: 20210204, end: 20210205
  50. CEFEPIME [Concomitant]
     Active Substance: CEFEPIME HYDROCHLORIDE
     Dosage: 2 GRAM, TID
     Route: 042
     Dates: start: 20210306, end: 20210312

REACTIONS (3)
  - Vascular device infection [Recovered/Resolved]
  - Septic embolus [Recovered/Resolved]
  - Endocarditis [Recovered/Resolved]

NARRATIVE: CASE EVENT DATE: 20210203
